FAERS Safety Report 10717323 (Version 1)
Quarter: 2015Q1

REPORT INFORMATION
  Report Type: Spontaneous
  Country: NL (occurrence: NL)
  Receive Date: 20150116
  Receipt Date: 20150116
  Transmission Date: 20150721
  Serious: Yes (Other)
  Sender: FDA-Public Use
  Company Number: NL-BAUSCH-BL-2014-009848

PATIENT
  Sex: Male

DRUGS (4)
  1. MINIMS OXYBUPROCAINE HYDROCHLORIDE 4 MG/ML, OOGDRUPPELS, OPLOSSING [Suspect]
     Active Substance: BENOXINATE HYDROCHLORIDE
     Indication: PRODUCT USED FOR UNKNOWN INDICATION
  2. TETRACAINE [Suspect]
     Active Substance: TETRACAINE\TETRACAINE HYDROCHLORIDE
     Indication: PRODUCT USED FOR UNKNOWN INDICATION
  3. AVASTIN [Suspect]
     Active Substance: BEVACIZUMAB
     Indication: PRODUCT USED FOR UNKNOWN INDICATION
  4. MINIMS  POVIDON  JODIUM  5% OOGDRUPPELS, OPLOSSING [Suspect]
     Active Substance: POVIDONE-IODINE
     Indication: PRODUCT USED FOR UNKNOWN INDICATION
     Dates: start: 2014

REACTIONS (2)
  - Drug interaction [Unknown]
  - Corneal epithelium defect [Unknown]

NARRATIVE: CASE EVENT DATE: 2014
